FAERS Safety Report 8922512 (Version 3)
Quarter: 2013Q2

REPORT INFORMATION
  Report Type: Spontaneous
  Country: US (occurrence: US)
  Receive Date: 20121126
  Receipt Date: 20130527
  Transmission Date: 20140414
  Serious: No
  Sender: FDA-Public Use
  Company Number: US-009507513-1211USA007200

PATIENT
  Age: 19 Year
  Sex: Female
  Weight: 89.8 kg

DRUGS (1)
  1. IMPLANON [Suspect]
     Indication: CONTRACEPTION
     Dosage: 1 ROD UP TO 3 YEARS
     Route: 059
     Dates: start: 20091027

REACTIONS (2)
  - Implant site bruising [Unknown]
  - Incorrect drug administration duration [Unknown]
